FAERS Safety Report 24785589 (Version 1)
Quarter: 2024Q4

REPORT INFORMATION
  Report Type: Spontaneous
  Country: US (occurrence: None)
  Receive Date: 20241227
  Receipt Date: 20241227
  Transmission Date: 20250115
  Serious: Yes (Disabling, Other)
  Sender: Public
  Company Number: None

PATIENT
  Age: 42 Year
  Sex: Female

DRUGS (1)
  1. SUBOXONE [Suspect]
     Active Substance: BUPRENORPHINE HYDROCHLORIDE\NALOXONE HYDROCHLORIDE
     Indication: Pain management
     Dosage: 1 TABLET EVERY 4 HOURS ORAL ?
     Route: 048

REACTIONS (10)
  - Dental caries [None]
  - Tooth loss [None]
  - Mental disorder [None]
  - Emotional disorder [None]
  - General physical condition normal [None]
  - Hypophagia [None]
  - Decreased appetite [None]
  - Quality of life decreased [None]
  - Product complaint [None]
  - Economic problem [None]

NARRATIVE: CASE EVENT DATE: 20210115
